FAERS Safety Report 18108992 (Version 3)
Quarter: 2020Q3

REPORT INFORMATION
  Report Type: Report from Study
  Country: US (occurrence: US)
  Receive Date: 20200804
  Receipt Date: 20200911
  Transmission Date: 20201103
  Serious: No
  Sender: FDA-Public Use
  Company Number: NVSC2020US216562

PATIENT
  Sex: Female

DRUGS (2)
  1. KISQALI [Suspect]
     Active Substance: RIBOCICLIB
     Indication: BREAST CANCER METASTATIC
     Dosage: UNK
     Route: 065
  2. KISQALI [Suspect]
     Active Substance: RIBOCICLIB
     Indication: MAXIMAL VOLUNTARY VENTILATION

REACTIONS (5)
  - Gingival bleeding [Unknown]
  - Alopecia [Unknown]
  - Cough [Unknown]
  - Back pain [Unknown]
  - White blood cell count decreased [Unknown]
